FAERS Safety Report 16808131 (Version 2)
Quarter: 2019Q3

REPORT INFORMATION
  Report Type: Spontaneous
  Country: DE (occurrence: DE)
  Receive Date: 20190916
  Receipt Date: 20190928
  Transmission Date: 20191005
  Serious: Yes (Hospitalization, Disabling, Other)
  Sender: FDA-Public Use
  Company Number: DE-BRISTOL-MYERS SQUIBB COMPANY-BMS-2019-048047

PATIENT
  Age: 29 Year
  Sex: Female
  Weight: 58 kg

DRUGS (4)
  1. THIAMAZOLE [Suspect]
     Active Substance: METHIMAZOLE
     Indication: PRODUCT USED FOR UNKNOWN INDICATION
     Dosage: UNK
     Route: 065
  2. LEVOTHYROXINE. [Concomitant]
     Active Substance: LEVOTHYROXINE
     Indication: PRODUCT USED FOR UNKNOWN INDICATION
     Dosage: 100 MICROGRAM
     Route: 065
  3. SULFASALAZINE. [Concomitant]
     Active Substance: SULFASALAZINE
     Indication: PRODUCT USED FOR UNKNOWN INDICATION
     Route: 065
  4. OPDIVO [Suspect]
     Active Substance: NIVOLUMAB
     Indication: MALIGNANT MELANOMA
     Dosage: 480 MILLIGRAM, Q4WK
     Route: 042
     Dates: start: 20180906, end: 20190321

REACTIONS (8)
  - Autoimmune thyroiditis [Not Recovered/Not Resolved]
  - Hypophysitis [Unknown]
  - Pancreatogenous diabetes [Not Recovered/Not Resolved]
  - Secondary adrenocortical insufficiency [Recovering/Resolving]
  - Agranulocytosis [Unknown]
  - Autoimmune pancreatitis [Not Recovered/Not Resolved]
  - Arthritis [Not Recovered/Not Resolved]
  - Colitis [Recovered/Resolved]

NARRATIVE: CASE EVENT DATE: 201810
